FAERS Safety Report 17171299 (Version 1)
Quarter: 2019Q4

REPORT INFORMATION
  Report Type: Spontaneous
  Country: US (occurrence: US)
  Receive Date: 20191218
  Receipt Date: 20191218
  Transmission Date: 20200122
  Serious: No
  Sender: FDA-Public Use
  Company Number: US-SUPERNUS PHARMACEUTICALS, INC.-2019SUP00366

PATIENT
  Sex: Female
  Weight: 79.37 kg

DRUGS (3)
  1. SEVERAL UNSPECIFIED MEDICATIONS [Concomitant]
     Active Substance: UNSPECIFIED INGREDIENT
  2. TROKENDI XR [Suspect]
     Active Substance: TOPIRAMATE
     Indication: MIGRAINE
     Dosage: 50 MG, 1X/DAY TAKEN WITH THE 100 MG CAPSULE FOR A TOTAL OF 150 MG PER DAY
     Route: 048
     Dates: start: 2019
  3. TROKENDI XR [Suspect]
     Active Substance: TOPIRAMATE
     Indication: MIGRAINE
     Dosage: 100 MG, 1X/DAY TAKEN WITH THE 50 MG CAPSULE FOR A TOTAL OF 150 MG PER DAY
     Route: 048
     Dates: start: 2019

REACTIONS (6)
  - Tendon disorder [Not Recovered/Not Resolved]
  - Pain [Not Recovered/Not Resolved]
  - Unevaluable event [Not Recovered/Not Resolved]
  - Impaired healing [Not Recovered/Not Resolved]
  - Ligament sprain [Not Recovered/Not Resolved]
  - Reaction to excipient [Not Recovered/Not Resolved]

NARRATIVE: CASE EVENT DATE: 2019
